FAERS Safety Report 6639912-7 (Version None)
Quarter: 2010Q1

REPORT INFORMATION
  Report Type: 
  Country: None (occurrence: None)
  Receive Date: 20100315
  Receipt Date: 20091201
  Transmission Date: 20100710
  Serious: Yes (Death)
  Sender: FDA-Public Use
  Company Number: 2009SP039781

PATIENT
  Sex: 0

DRUGS (7)
  1. EXLAX     (ROCURONIUM BROMIDE /01245702/) [Suspect]
     Indication: HYPOTONIA
     Dosage: IV
     Route: 042
  2. ULTIVA [Suspect]
     Indication: DRUG USE FOR UNKNOWN INDICATION
  3. SEVOFLURANE /01071401/ (SEVOFLURANE / 01071401/0 [Suspect]
     Indication: DRUG USE FOR UNKNOWN INDICATION
  4. ANAPEINE (ROPIVACAINE HYDROCHLORIDE) [Suspect]
     Indication: DRUG USE FOR UNKNOWN INDICATION
  5. DROPERIDOL [Suspect]
     Indication: DRUG USE FOR UNKNOWN INDICATION
  6. CALCICOL (CALCIUM GLUCONATE) [Suspect]
     Indication: DRUG USE FOR UNKNOWN INDICATION
  7. FENTANYL-100 [Suspect]
     Indication: DRUG USE FOR UNKNOWN INDICATION

REACTIONS (3)
  - BLOOD PRESSURE DECREASED [None]
  - BLOOD PRESSURE INCREASED [None]
  - HAEMORRHAGE [None]
